FAERS Safety Report 5848346-4 (Version None)
Quarter: 2008Q3

REPORT INFORMATION
  Report Type: 
  Country: None (occurrence: None)
  Receive Date: 20080818
  Receipt Date: 20080718
  Transmission Date: 20090109
  Serious: No
  Sender: FDA-Public Use
  Company Number: US-BAYER-200829229NA

PATIENT
  Age: 72 Year
  Sex: Male
  Weight: 97 kg

DRUGS (4)
  1. ULTRAVIST 370 [Suspect]
     Indication: COMPUTERISED TOMOGRAM ABDOMEN
     Dosage: TOTAL DAILY DOSE: 100 ML  UNIT DOSE: 500 ML
     Route: 042
     Dates: start: 20080718, end: 20080718
  2. ARICEPT [Concomitant]
  3. COUMADIN [Concomitant]
  4. ATENOLOL [Concomitant]

REACTIONS (1)
  - PRURITUS [None]
